FAERS Safety Report 5317648-2 (Version None)
Quarter: 2007Q2

REPORT INFORMATION
  Report Type: 
  Country: None (occurrence: None)
  Receive Date: 20070507
  Receipt Date: 20070427
  Transmission Date: 20071010
  Serious: Yes (Other)
  Sender: FDA-Public Use
  Company Number: PHEH2007US04482

PATIENT
  Age: 50 Year
  Sex: Female
  Weight: 57.142 kg

DRUGS (2)
  1. ZELNORM [Suspect]
     Indication: IRRITABLE BOWEL SYNDROME
     Dosage: 6 MG, BID
     Route: 048
     Dates: start: 20060328, end: 20070404
  2. EFFEXOR XR [Concomitant]
     Indication: DEPRESSION
     Dosage: 150MG, QD
     Route: 048
     Dates: start: 19970101

REACTIONS (6)
  - COUGH [None]
  - HYPERTENSION [None]
  - KIDNEY INFECTION [None]
  - LIMB INJURY [None]
  - MALAISE [None]
  - THYROID FUNCTION TEST ABNORMAL [None]
